FAERS Safety Report 5233578-9 (Version None)
Quarter: 2007Q1

REPORT INFORMATION
  Report Type: 
  Country: None (occurrence: None)
  Receive Date: 20070208
  Receipt Date: 20070128
  Transmission Date: 20070707
  Serious: Yes (Hospitalization, Other)
  Sender: FDA-Public Use
  Company Number: US-AMGEN-US208865

PATIENT
  Sex: Male

DRUGS (3)
  1. KINERET [Suspect]
     Indication: RHEUMATOID ARTHRITIS
  2. ENBREL [Suspect]
     Indication: RHEUMATOID ARTHRITIS
     Route: 058
     Dates: start: 20030801
  3. ARAVA [Concomitant]
     Route: 048

REACTIONS (3)
  - ANEURYSM [None]
  - ANEURYSM RUPTURED [None]
  - STAPHYLOCOCCAL INFECTION [None]
